FAERS Safety Report 20123549 (Version 1)
Quarter: 2021Q4

REPORT INFORMATION
  Report Type: Spontaneous
  Country: CN (occurrence: CN)
  Receive Date: 20211129
  Receipt Date: 20211129
  Transmission Date: 20220303
  Serious: Yes (Other)
  Sender: FDA-Public Use
  Company Number: CN-009507513-2111CHN008450

PATIENT
  Age: 23 Day
  Sex: Male
  Weight: 3.9 kg

DRUGS (3)
  1. CILASTATIN SODIUM\IMIPENEM [Suspect]
     Active Substance: CILASTATIN SODIUM\IMIPENEM
     Indication: Meconium aspiration syndrome
     Dosage: 0.072 GRAM, Q8H; ROUTE: PUMP INJECTION
     Dates: start: 20211102, end: 20211110
  2. CILASTATIN SODIUM\IMIPENEM [Suspect]
     Active Substance: CILASTATIN SODIUM\IMIPENEM
     Indication: Pneumonia
  3. DEXTROSE [Concomitant]
     Active Substance: DEXTROSE
     Indication: Meconium aspiration syndrome
     Dosage: 10 MILLILITER, Q8H; ROUTE: PUMP INJECTION
     Dates: start: 20211102, end: 20211110

REACTIONS (2)
  - Diarrhoea neonatal [Recovered/Resolved]
  - Product administered to patient of inappropriate age [Unknown]

NARRATIVE: CASE EVENT DATE: 20211102
